FAERS Safety Report 13763870 (Version 1)
Quarter: 2017Q3

REPORT INFORMATION
  Report Type: Spontaneous
  Country: CA (occurrence: CA)
  Receive Date: 20170718
  Receipt Date: 20170718
  Transmission Date: 20171127
  Serious: Yes (Hospitalization)
  Sender: FDA-Public Use
  Company Number: CA-HERITAGE PHARMACEUTICALS-2017HTG00184

PATIENT
  Age: 7 Day
  Sex: Male

DRUGS (1)
  1. INDOMETHACIN. [Suspect]
     Active Substance: INDOMETHACIN
     Indication: CONGENITAL CARDIOVASCULAR ANOMALY
     Route: 065

REACTIONS (1)
  - Coarctation of the aorta [Recovered/Resolved]
